FAERS Safety Report 7352547-6 (Version None)
Quarter: 2011Q1

REPORT INFORMATION
  Report Type: 
  Country: None (occurrence: None)
  Receive Date: 20110315
  Receipt Date: 20110309
  Transmission Date: 20110831
  Serious: Yes (Other)
  Sender: FDA-Public Use
  Company Number: US-ABBOTT-11P-163-0711053-00

PATIENT
  Sex: Male

DRUGS (3)
  1. PREDNISONE [Concomitant]
     Indication: PSORIASIS
  2. HUMIRA [Suspect]
     Indication: PSORIASIS
     Dates: start: 20101202, end: 20110201
  3. OXYCODONE [Concomitant]
     Indication: PAIN

REACTIONS (1)
  - ROTATOR CUFF REPAIR [None]
